FAERS Safety Report 19416086 (Version 1)
Quarter: 2021Q2

REPORT INFORMATION
  Report Type: Spontaneous
  Country: US (occurrence: US)
  Receive Date: 20210614
  Receipt Date: 20210614
  Transmission Date: 20210717
  Serious: No
  Sender: FDA-Public Use
  Company Number: US-DSJP-DSU-2021-117347

PATIENT
  Sex: Female

DRUGS (1)
  1. TURALIO [Suspect]
     Active Substance: PEXIDARTINIB HYDROCHLORIDE
     Indication: TENOSYNOVITIS
     Dosage: 2 DF, QD
     Route: 048
     Dates: start: 202105

REACTIONS (5)
  - Blood creatinine increased [Unknown]
  - Blood calcium increased [Unknown]
  - Vomiting [Unknown]
  - Nausea [Unknown]
  - Blood lactate dehydrogenase increased [Unknown]

NARRATIVE: CASE EVENT DATE: 2021
